FAERS Safety Report 6275339-8 (Version None)
Quarter: 2009Q3

REPORT INFORMATION
  Report Type: 
  Country: None (occurrence: None)
  Receive Date: 20090721
  Receipt Date: 20090716
  Transmission Date: 20100115
  Serious: Yes (Hospitalization)
  Sender: FDA-Public Use
  Company Number: B0584342A

PATIENT
  Sex: Male

DRUGS (9)
  1. CLAMOXYL IV [Suspect]
     Indication: ARTHRITIS
     Dosage: 1UNIT THREE TIMES PER DAY
     Route: 042
     Dates: start: 20081013, end: 20081016
  2. AMOXICILLIN SODIUM + CLAVULANIC ACID [Suspect]
     Indication: ARTHRITIS
     Dosage: 1UNIT THREE TIMES PER DAY
     Route: 042
     Dates: start: 20081011, end: 20081016
  3. ORBENIN CAP [Suspect]
     Indication: ARTHRITIS
     Dosage: 1UNIT FOUR TIMES PER DAY
     Route: 042
     Dates: start: 20081012, end: 20081015
  4. GENTAMICINE [Suspect]
     Indication: ARTHRITIS
     Dosage: 200MG PER DAY
     Route: 042
     Dates: start: 20081012, end: 20081015
  5. VANCOMYCIN [Suspect]
     Indication: ARTHRITIS
     Dosage: 2G PER DAY
     Route: 042
     Dates: start: 20081011, end: 20081012
  6. LOVENOX [Concomitant]
     Dosage: 1UNIT PER DAY
     Route: 058
     Dates: start: 20081010
  7. SEVREDOL [Concomitant]
     Indication: PAIN
     Dosage: 4UNIT PER DAY
     Route: 048
     Dates: start: 20081011, end: 20081018
  8. POLYETHYLENE GLYCOL [Concomitant]
     Indication: CONSTIPATION
     Dosage: 3UNIT PER DAY
     Route: 048
     Dates: start: 20081011
  9. DIFFU-K [Concomitant]
     Dosage: 1UNIT THREE TIMES PER DAY
     Route: 048
     Dates: start: 20081011

REACTIONS (2)
  - CHOLESTASIS [None]
  - CYTOLYTIC HEPATITIS [None]
